FAERS Safety Report 15155849 (Version 1)
Quarter: 2018Q3

REPORT INFORMATION
  Report Type: Spontaneous
  Country: GR (occurrence: GR)
  Receive Date: 20180717
  Receipt Date: 20180717
  Transmission Date: 20181010
  Serious: Yes (Death, Hospitalization)
  Sender: FDA-Public Use
  Company Number: GR-US WORLDMEDS, LLC-STA_00018470

PATIENT
  Age: 78 Year
  Sex: Female

DRUGS (5)
  1. CORTIZOLE [Concomitant]
     Indication: PRODUCT USED FOR UNKNOWN INDICATION
  2. MADOPAR [Concomitant]
     Active Substance: BENSERAZIDE HYDROCHLORIDE\LEVODOPA
     Indication: PARKINSON^S DISEASE
     Dates: start: 2006
  3. ARAVA [Concomitant]
     Active Substance: LEFLUNOMIDE
     Indication: ANKYLOSING SPONDYLITIS
  4. APOMORPHINE HYDROCHLORIDE [Suspect]
     Active Substance: APOMORPHINE HYDROCHLORIDE
     Indication: PARKINSON^S DISEASE
     Route: 058
     Dates: start: 201006, end: 201007
  5. COMPTAN [Concomitant]
     Indication: PARKINSON^S DISEASE
     Dates: start: 2006

REACTIONS (4)
  - Anaemia [Unknown]
  - Death [Fatal]
  - Red blood cell sedimentation rate increased [Unknown]
  - Haematocrit decreased [Unknown]

NARRATIVE: CASE EVENT DATE: 20100723
